FAERS Safety Report 15407090 (Version 2)
Quarter: 2018Q4

REPORT INFORMATION
  Report Type: Spontaneous
  Country: IT (occurrence: IT)
  Receive Date: 20180920
  Receipt Date: 20181005
  Transmission Date: 20190204
  Serious: Yes (Hospitalization)
  Sender: FDA-Public Use
  Company Number: IT-PFIZER INC-2018378014

PATIENT
  Age: 82 Year
  Sex: Male

DRUGS (10)
  1. DIAZEPAM. [Concomitant]
     Active Substance: DIAZEPAM
     Dosage: UNK
  2. COUMADIN [Suspect]
     Active Substance: WARFARIN SODIUM
     Indication: ATRIAL FIBRILLATION
     Dosage: 2.5 MG,(PRN)
     Route: 048
  3. AMIODARONE HCL [Suspect]
     Active Substance: AMIODARONE HYDROCHLORIDE
     Indication: ATRIAL FIBRILLATION
     Dosage: 200 MG, DAILY
     Route: 048
  4. PARACETAMOL [Suspect]
     Active Substance: ACETAMINOPHEN
     Indication: PYREXIA
     Dosage: 500 MG, (PRN)
     Route: 048
     Dates: start: 20170126, end: 20170127
  5. ANTRA [OMEPRAZOLE] [Concomitant]
     Dosage: 20 MG, UNK
  6. DEURSIL [Concomitant]
     Active Substance: URSODIOL
     Dosage: 450 MG, UNK
  7. TAMSULOSIN HYDROCHLORIDE. [Concomitant]
     Active Substance: TAMSULOSIN HYDROCHLORIDE
     Dosage: UNK
  8. EUTIROX [Concomitant]
     Active Substance: LEVOTHYROXINE SODIUM
     Dosage: (25) UNK
  9. MOVICOL [Concomitant]
     Active Substance: POLYETHYLENE GLYCOL 3350\POTASSIUM CHLORIDE\SODIUM BICARBONATE\SODIUM CHLORIDE
     Dosage: UNK
  10. GLYCERYL TRINITRATE [Concomitant]
     Active Substance: NITROGLYCERIN
     Dosage: UNK

REACTIONS (12)
  - Blood chloride decreased [Unknown]
  - Pain [Unknown]
  - International normalised ratio abnormal [Unknown]
  - Haemoglobin decreased [Unknown]
  - Haematoma [Unknown]
  - White blood cell count increased [Unknown]
  - Epistaxis [Unknown]
  - Haematochezia [Unknown]
  - Blood creatine phosphokinase abnormal [Unknown]
  - Pyrexia [Unknown]
  - Blood sodium decreased [Unknown]
  - Blood creatinine increased [Unknown]

NARRATIVE: CASE EVENT DATE: 20170128
